FAERS Safety Report 6056765-9 (Version None)
Quarter: 2009Q1

REPORT INFORMATION
  Report Type: 
  Country: None (occurrence: None)
  Receive Date: 20090113
  Receipt Date: 20090102
  Transmission Date: 20090719
  Serious: Yes (Hospitalization)
  Sender: FDA-Public Use
  Company Number: AEUSA200800299

PATIENT
  Age: 61 Year
  Sex: Female
  Weight: 72.5755 kg

DRUGS (4)
  1. PROLASTIN [Suspect]
     Indication: ALPHA-1 ANTI-TRYPSIN DEFICIENCY
     Dosage: 60 MG/KG;QW;IV
     Route: 042
     Dates: start: 19930101
  2. ADVAIR DISKUS 100/50 [Concomitant]
  3. SPIRIVA [Concomitant]
  4. ALBUTEROL [Concomitant]

REACTIONS (7)
  - CAROTID ARTERY STENOSIS [None]
  - FEELING ABNORMAL [None]
  - HYPOAESTHESIA [None]
  - LUMBAR SPINAL STENOSIS [None]
  - NERVE COMPRESSION [None]
  - SCIATICA [None]
  - SPONDYLOLISTHESIS [None]
